FAERS Safety Report 13934089 (Version 2)
Quarter: 2017Q3

REPORT INFORMATION
  Report Type: Spontaneous
  Country: NL (occurrence: NL)
  Receive Date: 20170904
  Receipt Date: 20170925
  Transmission Date: 20171127
  Serious: Yes (Other)
  Sender: FDA-Public Use
  Company Number: NL-MYLANLABS-2017M1053668

PATIENT
  Age: 21 Year
  Sex: Female

DRUGS (1)
  1. TERBINAFINE. [Suspect]
     Active Substance: TERBINAFINE
     Indication: TINEA PEDIS
     Dosage: 1X PER DAG 1
     Route: 048
     Dates: start: 20170801, end: 20170807

REACTIONS (3)
  - Bleeding time prolonged [Recovering/Resolving]
  - Haemorrhagic diathesis [Recovering/Resolving]
  - Increased tendency to bruise [Recovering/Resolving]

NARRATIVE: CASE EVENT DATE: 20170804
